FAERS Safety Report 9148889 (Version 1)
Quarter: 2013Q1

REPORT INFORMATION
  Report Type: Spontaneous
  Country: US (occurrence: US)
  Receive Date: 20130308
  Receipt Date: 20130308
  Transmission Date: 20140127
  Serious: No
  Sender: FDA-Public Use
  Company Number: US-ENDO PHARMACEUTICALS INC.-OPCR20121421

PATIENT
  Age: 47 Year
  Sex: Male

DRUGS (9)
  1. OPANA ER [Suspect]
     Indication: INTERVERTEBRAL DISC DEGENERATION
     Route: 048
     Dates: start: 201204
  2. OPANA ER [Suspect]
     Indication: ARTHRITIS
  3. OPANA ER [Suspect]
     Indication: NERVE INJURY
  4. OPANA ER [Concomitant]
     Indication: INTERVERTEBRAL DISC DEGENERATION
     Route: 048
     Dates: start: 201111, end: 201204
  5. OPANA ER [Concomitant]
     Indication: ARTHRITIS
  6. OPANA ER [Concomitant]
     Indication: NERVE INJURY
  7. LISINOPRIL TABLETS [Concomitant]
     Indication: BLOOD PRESSURE
     Dosage: UNK
  8. METFORMIN [Concomitant]
     Indication: HYPERGLYCAEMIA
     Dosage: UNK
  9. FAMOTIDINE [Concomitant]
     Indication: GASTRIC DISORDER
     Dosage: UNK

REACTIONS (8)
  - Hyperglycaemia [Not Recovered/Not Resolved]
  - Hypoaesthesia [Not Recovered/Not Resolved]
  - Anxiety [Not Recovered/Not Resolved]
  - Insomnia [Not Recovered/Not Resolved]
  - Dizziness [Not Recovered/Not Resolved]
  - Abdominal discomfort [Not Recovered/Not Resolved]
  - Heart rate increased [Not Recovered/Not Resolved]
  - Drug ineffective [Not Recovered/Not Resolved]
